FAERS Safety Report 6318120-3 (Version None)
Quarter: 2009Q3

REPORT INFORMATION
  Report Type: 
  Country: None (occurrence: None)
  Receive Date: 20090821
  Receipt Date: 20090813
  Transmission Date: 20100115
  Serious: Yes (Other)
  Sender: FDA-Public Use
  Company Number: US-ASTRAZENECA-2009SE07930

PATIENT
  Age: 351 Month
  Sex: Male
  Weight: 77.1 kg

DRUGS (5)
  1. SEROQUEL XR [Suspect]
     Indication: BIPOLAR DISORDER
     Route: 048
     Dates: start: 20090705
  2. SEROQUEL XR [Suspect]
     Route: 048
     Dates: start: 20090719
  3. SEROQUEL XR [Suspect]
     Route: 048
     Dates: start: 20090802, end: 20090810
  4. METHADONE [Concomitant]
  5. IBUPROFEN [Concomitant]
     Dosage: PRN

REACTIONS (3)
  - LOSS OF CONSCIOUSNESS [None]
  - ROAD TRAFFIC ACCIDENT [None]
  - SOMNOLENCE [None]
